FAERS Safety Report 15542519 (Version 2)
Quarter: 2018Q4

REPORT INFORMATION
  Report Type: Spontaneous
  Country: US (occurrence: US)
  Receive Date: 20181023
  Receipt Date: 20181118
  Transmission Date: 20190205
  Serious: No
  Sender: FDA-Public Use
  Company Number: US-JNJFOC-20181017737

PATIENT
  Sex: Female
  Weight: 72.58 kg

DRUGS (1)
  1. DURAGESIC [Suspect]
     Active Substance: FENTANYL
     Indication: PRODUCT USED FOR UNKNOWN INDICATION
     Route: 062
     Dates: start: 2003, end: 2006

REACTIONS (2)
  - Product adhesion issue [Unknown]
  - Wrong technique in product usage process [Unknown]
